FAERS Safety Report 23555334 (Version 1)
Quarter: 2024Q1

REPORT INFORMATION
  Report Type: Spontaneous
  Country: US (occurrence: US)
  Receive Date: 20240222
  Receipt Date: 20240222
  Transmission Date: 20240409
  Serious: No
  Sender: FDA-Public Use
  Company Number: US-LANTHEUS-LMI-2023-01050

PATIENT
  Age: 42 Year
  Sex: Female
  Weight: 78 kg

DRUGS (1)
  1. DEFINITY [Suspect]
     Active Substance: PERFLUTREN
     Indication: Echocardiogram
     Dosage: 3 MILLILITRE (1.5 ML OF DEFINITY PREPARED IN 8.5 ML OF NS)
     Route: 042
     Dates: start: 20230830, end: 20230830

REACTIONS (5)
  - Throat irritation [Recovering/Resolving]
  - Chest discomfort [Recovering/Resolving]
  - Throat tightness [Recovering/Resolving]
  - Cough [Recovering/Resolving]
  - Dyspnoea [Recovering/Resolving]

NARRATIVE: CASE EVENT DATE: 20230830
